FAERS Safety Report 20931426 (Version 3)
Quarter: 2022Q2

REPORT INFORMATION
  Report Type: Report from Study
  Country: CA (occurrence: CA)
  Receive Date: 20220608
  Receipt Date: 20220629
  Transmission Date: 20220721
  Serious: Yes (Other)
  Sender: FDA-Public Use
  Company Number: CA-SERVIER-S22005836

PATIENT

DRUGS (19)
  1. PEGASPARGASE [Suspect]
     Active Substance: PEGASPARGASE
     Indication: B-cell type acute leukaemia
     Dosage: 200 IU/M2, EVERY 2 WEEKS
     Route: 030
     Dates: start: 20210414, end: 20210729
  2. MERCAPTOPURINE [Suspect]
     Active Substance: MERCAPTOPURINE
     Indication: Acute lymphocytic leukaemia
     Dosage: 50 MG/M2
     Route: 048
     Dates: start: 20211118, end: 20220406
  3. MERCAPTOPURINE [Suspect]
     Active Substance: MERCAPTOPURINE
     Dosage: 40 MG/M2
     Route: 048
     Dates: start: 20220211, end: 20220510
  4. METHOTREXATE [Suspect]
     Active Substance: METHOTREXATE
     Indication: Acute lymphocytic leukaemia
     Dosage: 30 MG/M2
     Route: 042
     Dates: start: 20220211, end: 20220324
  5. METHOTREXATE [Suspect]
     Active Substance: METHOTREXATE
     Dosage: 30 MG/M2
     Route: 048
     Dates: start: 20220218, end: 20220511
  6. METHOTREXATE [Suspect]
     Active Substance: METHOTREXATE
     Dosage: 5000 MG/M2
     Route: 042
     Dates: start: 20210624, end: 20210625
  7. METHOTREXATE [Suspect]
     Active Substance: METHOTREXATE
     Dosage: 12 MG
     Route: 037
     Dates: start: 20210409, end: 20210623
  8. METHOTREXATE [Suspect]
     Active Substance: METHOTREXATE
     Dosage: 12 MG
     Route: 037
     Dates: start: 20211006, end: 20220427
  9. CYTARABINE [Suspect]
     Active Substance: CYTARABINE
     Indication: Acute lymphocytic leukaemia
     Dosage: 75 MG/M2
     Route: 058
     Dates: start: 20210603, end: 20210613
  10. CYTARABINE [Suspect]
     Active Substance: CYTARABINE
     Dosage: 40 MG
     Route: 037
     Dates: start: 20211006, end: 20220427
  11. HYDROCORTISONE [Suspect]
     Active Substance: HYDROCORTISONE
     Indication: Acute lymphocytic leukaemia
     Dosage: 15 MG
     Route: 037
     Dates: start: 20211006, end: 20220427
  12. CYCLOPHOSPHAMIDE [Suspect]
     Active Substance: CYCLOPHOSPHAMIDE
     Indication: Acute lymphocytic leukaemia
     Dosage: 1000 MG/M2
     Route: 042
     Dates: start: 20210603, end: 20210603
  13. DOXORUBICIN [Suspect]
     Active Substance: DOXORUBICIN
     Indication: Acute lymphocytic leukaemia
     Dosage: 30 MG/M2
     Route: 042
     Dates: start: 20210826, end: 20211006
  14. LEUCOVORIN [Suspect]
     Active Substance: LEUCOVORIN
     Indication: Acute lymphocytic leukaemia
     Dosage: 75 MG/M2
     Route: 042
     Dates: start: 20210625, end: 20210625
  15. LEUCOVORIN [Suspect]
     Active Substance: LEUCOVORIN
     Dosage: 15 MG/M2
     Route: 042
     Dates: start: 20210626, end: 20210627
  16. MESNA [Suspect]
     Active Substance: MESNA
     Indication: Acute lymphocytic leukaemia
     Dosage: 200 MG/M2
     Route: 042
     Dates: start: 20210603, end: 20210603
  17. DEXRAZOXANE [Suspect]
     Active Substance: DEXRAZOXANE
     Indication: Acute lymphocytic leukaemia
     Dosage: 300 MG/M2
     Route: 042
     Dates: start: 20210826, end: 20211026
  18. VINCRISTINE [Suspect]
     Active Substance: VINCRISTINE
     Indication: Acute lymphocytic leukaemia
     Dosage: 2 MG/M2
     Route: 042
     Dates: start: 20220211, end: 20220427
  19. DEXAMETHASONE [Suspect]
     Active Substance: DEXAMETHASONE
     Indication: Acute lymphocytic leukaemia
     Dosage: 3 MG/M2
     Route: 048
     Dates: start: 20220211, end: 20220501

REACTIONS (1)
  - Appendicitis [Recovered/Resolved]
